FAERS Safety Report 17275269 (Version 3)
Quarter: 2020Q1

REPORT INFORMATION
  Report Type: Spontaneous
  Country: FR (occurrence: FR)
  Receive Date: 20200116
  Receipt Date: 20200207
  Transmission Date: 20200409
  Serious: Yes (Death, Hospitalization, Other)
  Sender: FDA-Public Use
  Company Number: FR-AUROBINDO-AUR-APL-2020-002393

PATIENT
  Age: 75 Year
  Sex: Female

DRUGS (3)
  1. 5-FLUOROURACIL [Suspect]
     Active Substance: FLUOROURACIL
     Indication: COLON CANCER
     Dosage: UNK (INITIALLY WITH OXALIPLATIN THEN WITH IRINOTECAN)
     Route: 065
  2. OXALIPLATIN. [Suspect]
     Active Substance: OXALIPLATIN
     Indication: COLON CANCER
     Dosage: UNK (WITH FLUOROURACIL)
     Route: 065
  3. IRINOTECAN [Suspect]
     Active Substance: IRINOTECAN
     Indication: COLON CANCER
     Dosage: UNK (WITH FLUOROURACIL)
     Route: 065

REACTIONS (9)
  - Coma [Fatal]
  - Hallucination, auditory [Unknown]
  - Neutropenia [Unknown]
  - Asthenia [Unknown]
  - Thrombocytopenia [Unknown]
  - Dyspnoea exertional [Unknown]
  - Limbic encephalitis [Fatal]
  - Anaemia [Unknown]
  - Acute myeloid leukaemia [Fatal]
